FAERS Safety Report 8026639 (Version 9)
Quarter: 2015Q2

REPORT INFORMATION
  Report Type: Spontaneous
  Country: CA (occurrence: CA)
  Receive Date: 20110708
  Receipt Date: 20150401
  Transmission Date: 20150821
  Serious: Yes (Hospitalization, Other)
  Sender: FDA-Public Use
  Company Number: CA-GLAXOSMITHKLINE-A0934667A

PATIENT
  Age: 64 Year
  Sex: Female
  Weight: 78 kg

DRUGS (18)
  1. ADVAIR HFA [Suspect]
     Active Substance: FLUTICASONE PROPIONATE\SALMETEROL XINAFOATE
     Indication: CHRONIC OBSTRUCTIVE PULMONARY DISEASE
     Dosage: ADVAIR 250 MCG DISKUS
     Route: 055
     Dates: start: 2004
  2. ABILIFY [Suspect]
     Active Substance: ARIPIPRAZOLE
     Indication: PARKINSON^S DISEASE
     Route: 065
     Dates: start: 2012, end: 2013
  3. WARFARIN [Concomitant]
     Active Substance: WARFARIN
     Indication: PRODUCT USED FOR UNKNOWN INDICATION
     Dosage: UNK
  4. METFORMIN [Concomitant]
     Active Substance: METFORMIN HYDROCHLORIDE
  5. ATORVASTATIN [Concomitant]
     Active Substance: ATORVASTATIN
  6. LITHIUM. [Concomitant]
     Active Substance: LITHIUM
     Route: 065
  7. BYSTOLIC [Concomitant]
     Active Substance: NEBIVOLOL HYDROCHLORIDE
     Dates: start: 201404
  8. SINEMET [Suspect]
     Active Substance: CARBIDOPA\LEVODOPA
     Indication: PARKINSON^S DISEASE
     Route: 065
     Dates: start: 201203, end: 2013
  9. VENTOLIN [Concomitant]
     Active Substance: ALBUTEROL SULFATE
     Route: 065
  10. TELMISARTAN. [Concomitant]
     Active Substance: TELMISARTAN
  11. VITAMIN D [Concomitant]
     Active Substance: CHOLECALCIFEROL
  12. ANTI-PSYCHOTIC MEDICATION [Suspect]
     Active Substance: UNSPECIFIED INGREDIENT
     Indication: PRODUCT USED FOR UNKNOWN INDICATION
     Route: 065
  13. AMIODARONE [Concomitant]
     Active Substance: AMIODARONE
     Dosage: 200 MG, QD
  14. BISOPROLOL [Concomitant]
     Active Substance: BISOPROLOL
     Dosage: 5 MG IN AM, 2.5MG AT NIGHT
  15. AMIODARONE [Concomitant]
     Active Substance: AMIODARONE
     Indication: PRODUCT USED FOR UNKNOWN INDICATION
     Dosage: 200 MG, BID
  16. FLOVENT [Suspect]
     Active Substance: FLUTICASONE PROPIONATE
     Dosage: 1 PUFF(S), BID (250)
  17. SEROQUEL XR [Concomitant]
     Active Substance: QUETIAPINE FUMARATE
  18. OMEPRAZOLE. [Concomitant]
     Active Substance: OMEPRAZOLE

REACTIONS (30)
  - Dyspnoea [Recovering/Resolving]
  - Fatigue [Unknown]
  - Atrial fibrillation [Unknown]
  - Asthenia [Unknown]
  - Chest discomfort [Not Recovered/Not Resolved]
  - Discomfort [Unknown]
  - Ventricular tachycardia [Recovered/Resolved]
  - Increased upper airway secretion [Not Recovered/Not Resolved]
  - Blood pressure increased [Unknown]
  - Weight increased [Unknown]
  - Anxiety [Recovered/Resolved]
  - Schizophrenia [Recovered/Resolved]
  - Adverse event [Not Recovered/Not Resolved]
  - Psychotic disorder [Recovered/Resolved]
  - Palpitations [Unknown]
  - Delusion [Recovered/Resolved]
  - Paranoia [Recovered/Resolved]
  - Victim of abuse [Unknown]
  - Adrenal mass [Unknown]
  - Panic attack [Recovered/Resolved]
  - Drug dose omission [Unknown]
  - Asthma [Not Recovered/Not Resolved]
  - Productive cough [Unknown]
  - Wheezing [Not Recovered/Not Resolved]
  - Arthritis [Unknown]
  - Atrial tachycardia [Not Recovered/Not Resolved]
  - Delirium [Recovered/Resolved]
  - Cough [Unknown]
  - Bronchitis [Not Recovered/Not Resolved]
  - Influenza [Unknown]

NARRATIVE: CASE EVENT DATE: 20111016
